FAERS Safety Report 5826682-5 (Version None)
Quarter: 2008Q3

REPORT INFORMATION
  Report Type: 
  Country: None (occurrence: None)
  Receive Date: 20080730
  Receipt Date: 20080213
  Transmission Date: 20090109
  Serious: No
  Sender: FDA-Public Use
  Company Number: US-BAYER-200810699BCC

PATIENT
  Age: 36 Year
  Sex: Female
  Weight: 68 kg

DRUGS (2)
  1. ALEVE (CAPLET) [Suspect]
     Indication: NECK PAIN
     Dosage: UNIT DOSE: 220 MG
     Route: 048
     Dates: start: 20080213
  2. ALEVE COLD AND SINUS [Suspect]
     Indication: HEADACHE
     Route: 048
     Dates: start: 20080213

REACTIONS (1)
  - NAUSEA [None]
